FAERS Safety Report 23974807 (Version 2)
Quarter: 2024Q3

REPORT INFORMATION
  Report Type: Report from Study
  Country: CA (occurrence: CA)
  Receive Date: 20240614
  Receipt Date: 20240829
  Transmission Date: 20241017
  Serious: Yes (Hospitalization, Other)
  Sender: EMD SERONO INC
  Company Number: CA-Merck Healthcare KGaA-2024031256

PATIENT
  Sex: Female

DRUGS (3)
  1. MAVENCLAD [Suspect]
     Active Substance: CLADRIBINE
     Indication: Multiple sclerosis
     Dosage: YEAR ONE WEEK ONE THERAPY
     Route: 048
     Dates: start: 20230922
  2. MAVENCLAD [Suspect]
     Active Substance: CLADRIBINE
     Dosage: YEAR ONE WEEK TWO THERAPY
     Route: 048
  3. COVID-19 VACCINE NOS [Suspect]
     Active Substance: COVID-19 VACCINE
     Indication: COVID-19 immunisation

REACTIONS (13)
  - Decreased immune responsiveness [Unknown]
  - Lower respiratory tract infection [Not Recovered/Not Resolved]
  - Chronic sinusitis [Recovered/Resolved]
  - Hospitalisation [Unknown]
  - Ear disorder [Not Recovered/Not Resolved]
  - Eye disorder [Unknown]
  - Pain of skin [Not Recovered/Not Resolved]
  - Saliva altered [Unknown]
  - COVID-19 [Unknown]
  - Agitation [Unknown]
  - Multiple sclerosis [Unknown]
  - Dairy intolerance [Unknown]
  - Ill-defined disorder [Unknown]
